FAERS Safety Report 5677105-0 (Version None)
Quarter: 2008Q1

REPORT INFORMATION
  Report Type: 
  Country: None (occurrence: None)
  Receive Date: 20080324
  Receipt Date: 20080312
  Transmission Date: 20080703
  Serious: Yes (Other)
  Sender: FDA-Public Use
  Company Number: US-AMGEN-QUU269577

PATIENT
  Sex: Male
  Weight: 111 kg

DRUGS (2)
  1. ENBREL [Suspect]
     Indication: ANKYLOSING SPONDYLITIS
  2. HUMIRA [Suspect]
     Route: 058
     Dates: start: 20060101, end: 20080131

REACTIONS (8)
  - ANKYLOSING SPONDYLITIS [None]
  - EYE DISORDER [None]
  - INJECTION SITE BRUISING [None]
  - INJECTION SITE HAEMORRHAGE [None]
  - JOINT SWELLING [None]
  - NASOPHARYNGITIS [None]
  - PAIN [None]
  - RESPIRATORY TRACT CONGESTION [None]
